FAERS Safety Report 25678220 (Version 1)
Quarter: 2025Q3

REPORT INFORMATION
  Report Type: Spontaneous
  Country: EU (occurrence: EU)
  Receive Date: 20250813
  Receipt Date: 20250813
  Transmission Date: 20251021
  Serious: Yes (Other)
  Sender: NOVO NORDISK
  Company Number: None

PATIENT
  Age: 14 Year
  Sex: Female

DRUGS (1)
  1. RYBELSUS [Suspect]
     Active Substance: SEMAGLUTIDE
     Indication: Product used for unknown indication
     Route: 048

REACTIONS (7)
  - Feeling abnormal [Unknown]
  - Hot flush [Unknown]
  - Malaise [Unknown]
  - Hepatic pain [Unknown]
  - Decreased appetite [Unknown]
  - Wrong product administered [Unknown]
  - Product administered to patient of inappropriate age [Unknown]
